FAERS Safety Report 17577549 (Version 1)
Quarter: 2020Q1

REPORT INFORMATION
  Report Type: Spontaneous
  Country: US (occurrence: US)
  Receive Date: 20200324
  Receipt Date: 20200324
  Transmission Date: 20200409
  Serious: No
  Sender: FDA-Public Use
  Company Number: None

PATIENT
  Age: 77 Year
  Sex: Female
  Weight: 47.03 kg

DRUGS (8)
  1. SYNTHROID [Concomitant]
     Active Substance: LEVOTHYROXINE SODIUM
  2. VITAMIN D3 [Concomitant]
     Active Substance: CHOLECALCIFEROL
  3. PROCHLORPERAZINE 10MG [Concomitant]
  4. PIQRAY [Suspect]
     Active Substance: ALPELISIB
     Indication: BREAST CANCER FEMALE
     Route: 048
     Dates: start: 20200208
  5. VITAMIN B12 [Concomitant]
     Active Substance: CYANOCOBALAMIN
  6. IBUPROFEN 200MG [Concomitant]
     Active Substance: IBUPROFEN
  7. METFORMIN 500MG [Concomitant]
     Active Substance: METFORMIN HYDROCHLORIDE
  8. CALCIUM 600 +D [Concomitant]

REACTIONS (4)
  - Tongue disorder [None]
  - Dry mouth [None]
  - Dysgeusia [None]
  - Palmar-plantar erythrodysaesthesia syndrome [None]

NARRATIVE: CASE EVENT DATE: 20200324
